FAERS Safety Report 9336467 (Version 1)
Quarter: 2013Q2

REPORT INFORMATION
  Report Type: Spontaneous
  Country: ES (occurrence: ES)
  Receive Date: 20130607
  Receipt Date: 20130607
  Transmission Date: 20140414
  Serious: Yes (Disabling)
  Sender: FDA-Public Use
  Company Number: ES-ACCORD-017889

PATIENT
  Age: 39 Year
  Sex: Female

DRUGS (2)
  1. PACLITAXEL [Suspect]
     Indication: BREAST CANCER METASTATIC
     Dosage: ON DAYS 1, 8, AND 15, REPEATED EVERY 3 WEEKS
     Route: 042
  2. GEMCITABINE [Concomitant]
     Indication: BREAST CANCER METASTATIC
     Dosage: ON DAY 1,8 AND 15, REPEATED EVERY 3 WEEKS
     Route: 042

REACTIONS (1)
  - Cystoid macular oedema [Recovered/Resolved]
